FAERS Safety Report 14970014 (Version 1)
Quarter: 2018Q2

REPORT INFORMATION
  Report Type: Spontaneous
  Country: US (occurrence: US)
  Receive Date: 20180512
  Receipt Date: 20180512
  Transmission Date: 20180711
  Serious: Yes (Disabling)
  Sender: FDA-Public Use
  Company Number: None

PATIENT
  Age: 44 Year
  Sex: Female
  Weight: 67.5 kg

DRUGS (1)
  1. OXYCONTIN [Suspect]
     Active Substance: OXYCODONE HYDROCHLORIDE
     Indication: PAIN
     Dosage: ?          QUANTITY:1 DF DOSAGE FORM;?
     Route: 048

REACTIONS (7)
  - Incorrect dosage administered [None]
  - Somnolence [None]
  - Lethargy [None]
  - Drug dispensing error [None]
  - Dizziness [None]
  - Impaired quality of life [None]
  - Nausea [None]

NARRATIVE: CASE EVENT DATE: 20140512
